FAERS Safety Report 9457279 (Version 2)
Quarter: 2013Q3

REPORT INFORMATION
  Report Type: Report from Study
  Country: DE (occurrence: DE)
  Receive Date: 20130814
  Receipt Date: 20130902
  Transmission Date: 20140515
  Serious: Yes (Other)
  Sender: FDA-Public Use
  Company Number: PHHY2013DE049653

PATIENT
  Sex: Female
  Weight: 75 kg

DRUGS (9)
  1. GLIVEC [Suspect]
     Indication: GASTROINTESTINAL STROMAL TUMOUR
     Dosage: UNK UKN, UNK
     Route: 048
  2. GLIVEC [Suspect]
     Dosage: 400 MG, BID
     Route: 048
     Dates: start: 20110127
  3. BISOHEXAL [Concomitant]
     Indication: HYPERTENSION
     Dosage: 5 MG, BID
     Route: 048
  4. RAMICARD [Concomitant]
     Indication: HYPERTENSION
     Dosage: 5 MG, QD
     Route: 048
  5. TORASEMIDE [Concomitant]
     Indication: OEDEMA
     Dosage: 2.5 MG, BID
     Route: 048
     Dates: start: 20110506
  6. PANTOPRAZOLE [Concomitant]
     Indication: ABDOMINAL DISCOMFORT
     Dosage: 40 MG, BID
     Route: 048
     Dates: start: 2010
  7. MAGIUM K [Concomitant]
     Dosage: UNK UKN,50/100MG
     Route: 048
  8. IODIDE [Concomitant]
     Indication: THYROID DISORDER
     Dosage: 100 UG, QD
     Route: 048
  9. MICROGYNON [Concomitant]
     Indication: CONTRACEPTION
     Dosage: UNK UKN, UNK

REACTIONS (3)
  - Fatigue [Unknown]
  - Blister [Recovered/Resolved]
  - Depressed mood [Not Recovered/Not Resolved]
